FAERS Safety Report 5076224-X (Version None)
Quarter: 2006Q3

REPORT INFORMATION
  Report Type: 
  Country: None (occurrence: None)
  Receive Date: 20060807
  Receipt Date: 20060725
  Transmission Date: 20061208
  Serious: Yes (Other)
  Sender: FDA-Public Use
  Company Number: 228042

PATIENT
  Sex: Female

DRUGS (2)
  1. AVASTIN [Suspect]
     Indication: BREAST CANCER METASTATIC
     Dosage: Q3W, INTRAVENOUS
     Route: 042
  2. ABRAXANE (PACLITAXEL) [Concomitant]

REACTIONS (2)
  - LUNG DISORDER [None]
  - PLEURAL DISORDER [None]
